FAERS Safety Report 5400645-6 (Version None)
Quarter: 2007Q3

REPORT INFORMATION
  Report Type: 
  Country: None (occurrence: None)
  Receive Date: 20070730
  Receipt Date: 20070709
  Transmission Date: 20080115
  Serious: Yes (Hospitalization, Other)
  Sender: FDA-Public Use
  Company Number: JP-PFIZER INC-2007014492

PATIENT
  Sex: Female

DRUGS (3)
  1. DISOPYRAMIDE PHOSPHATE [Suspect]
     Route: 048
  2. DILTIAZEM [Suspect]
     Route: 048
  3. KALLIDINOGENASE [Suspect]
     Route: 048

REACTIONS (9)
  - DEPRESSED LEVEL OF CONSCIOUSNESS [None]
  - ELECTROCARDIOGRAM QT PROLONGED [None]
  - HEART RATE DECREASED [None]
  - HYPOKALAEMIA [None]
  - HYPOTENSION [None]
  - MULTIPLE DRUG OVERDOSE [None]
  - NODAL RHYTHM [None]
  - OVERDOSE [None]
  - SUICIDE ATTEMPT [None]
